FAERS Safety Report 12543879 (Version 1)
Quarter: 2016Q3

REPORT INFORMATION
  Report Type: Spontaneous
  Country: US (occurrence: None)
  Receive Date: 20160708
  Receipt Date: 20160708
  Transmission Date: 20161109
  Serious: Yes (Other)
  Sender: FDA-Public Use
  Company Number: None

PATIENT
  Age: 63 Year
  Sex: Female

DRUGS (3)
  1. ACETAMINOPHEN. [Concomitant]
     Active Substance: ACETAMINOPHEN
  2. HOMEOPATHIC REMEDIES [Concomitant]
  3. ZEPATIER [Suspect]
     Active Substance: ELBASVIR\GRAZOPREVIR
     Indication: HEPATITIS C
     Dosage: 50-100MG ONE TIME DAILY ORAL
     Route: 048
     Dates: start: 20160420

REACTIONS (1)
  - Metastatic lymphoma [None]

NARRATIVE: CASE EVENT DATE: 20160608
